FAERS Safety Report 8851402 (Version 1)
Quarter: 2012Q4

REPORT INFORMATION
  Report Type: 
  Country: FR (occurrence: FR)
  Receive Date: 20121022
  Receipt Date: 20121022
  Transmission Date: 20130627
  Serious: Yes (Hospitalization)
  Sender: FDA-Public Use
  Company Number: FR-ROCHE-1147185

PATIENT
  Age: 47 Year
  Sex: Male

DRUGS (13)
  1. COPEGUS [Suspect]
     Indication: HEPATITIS C
     Route: 048
     Dates: start: 20120618
  2. PEGASYS [Suspect]
     Indication: HEPATITIS C
     Route: 058
     Dates: start: 20120619
  3. INCIVO [Concomitant]
  4. EPIVIR [Concomitant]
  5. REYATAZ [Concomitant]
  6. NORVIR [Concomitant]
  7. ISENTRESS [Concomitant]
  8. DAFALGAN [Concomitant]
  9. DEROXAT [Concomitant]
  10. FUCIDINE [Concomitant]
  11. OMEPRAZOLE [Concomitant]
  12. SUBUTEX [Concomitant]
  13. THERALENE (BELGIUM) [Concomitant]

REACTIONS (1)
  - Delirium [Recovered/Resolved]
